FAERS Safety Report 6888260-9 (Version None)
Quarter: 2010Q3

REPORT INFORMATION
  Report Type: 
  Country: None (occurrence: None)
  Receive Date: 20100730
  Receipt Date: 20100715
  Transmission Date: 20110219
  Serious: Yes (Hospitalization)
  Sender: FDA-Public Use
  Company Number: CL-BAXTER-2010BH018219

PATIENT
  Age: 60 Year
  Sex: Male

DRUGS (8)
  1. DIANEAL [Suspect]
     Indication: RENAL FAILURE CHRONIC
     Route: 033
  2. CEFTAZIDIME [Concomitant]
     Indication: PRODUCT USED FOR UNKNOWN INDICATION
     Route: 033
     Dates: start: 20100605
  3. VANCOMYCIN [Concomitant]
     Indication: PRODUCT USED FOR UNKNOWN INDICATION
     Route: 033
     Dates: start: 20100605
  4. CIPROFLOXACIN [Concomitant]
     Indication: PRODUCT USED FOR UNKNOWN INDICATION
     Route: 048
     Dates: start: 20100605
  5. CEFTAZIDIME [Concomitant]
     Route: 033
     Dates: start: 20100606
  6. CEFTAZIDIME [Concomitant]
     Route: 033
     Dates: start: 20100607
  7. VORICONAZOLE [Concomitant]
     Indication: PRODUCT USED FOR UNKNOWN INDICATION
     Route: 033
     Dates: start: 20100705
  8. VORICONAZOLE [Concomitant]
     Route: 033
     Dates: start: 20100707

REACTIONS (1)
  - FUNGAL PERITONITIS [None]
